FAERS Safety Report 5133634-X (Version None)
Quarter: 2006Q4

REPORT INFORMATION
  Report Type: 
  Country: None (occurrence: None)
  Receive Date: 20061018
  Receipt Date: 20061005
  Transmission Date: 20070319
  Serious: Yes (Other)
  Sender: FDA-Public Use
  Company Number: 2006EU002751

PATIENT
  Age: 58 Year
  Sex: Male
  Weight: 100 kg

DRUGS (1)
  1. PROTOPIC [Suspect]
     Indication: BALANITIS
     Dosage: 0.3 %, BIG, TOPICAL
     Route: 061
     Dates: start: 20040304, end: 20050218

REACTIONS (1)
  - PENILE MALIGNANT NEOPLASM [None]
